FAERS Safety Report 9390362 (Version 2)
Quarter: 2013Q3

REPORT INFORMATION
  Report Type: Report from Study
  Country: US (occurrence: US)
  Receive Date: 20130709
  Receipt Date: 20130904
  Transmission Date: 20140515
  Serious: Yes (Hospitalization, Other)
  Sender: FDA-Public Use
  Company Number: US-ROCHE-1245621

PATIENT
  Age: 37 Year
  Sex: Female
  Weight: 65.63 kg

DRUGS (4)
  1. BEVACIZUMAB [Suspect]
     Indication: OVARIAN EPITHELIAL CANCER
     Dosage: LAST DOSE ADMINISTERED ON 05/APR/2013.
     Route: 042
     Dates: start: 20130223
  2. PACLITAXEL [Suspect]
     Indication: OVARIAN EPITHELIAL CANCER
     Dosage: LAST DOSE ADMINISTERED ON 05/APR/2013
     Route: 042
     Dates: start: 20130223
  3. CARBOPLATIN [Suspect]
     Indication: OVARIAN EPITHELIAL CANCER
     Dosage: LAST DOSE ADMINISTERED ON 05/APR/2013
     Route: 042
  4. ZOFRAN [Concomitant]
     Route: 042

REACTIONS (2)
  - Small intestinal obstruction [Not Recovered/Not Resolved]
  - Neutrophil count decreased [Unknown]
